FAERS Safety Report 11131272 (Version 2)
Quarter: 2015Q2

REPORT INFORMATION
  Report Type: Spontaneous
  Country: JP (occurrence: JP)
  Receive Date: 20150522
  Receipt Date: 20150527
  Transmission Date: 20150821
  Serious: No
  Sender: FDA-Public Use
  Company Number: JP-009507513-1505JPN009960

PATIENT
  Age: 41 Year
  Sex: Female

DRUGS (4)
  1. BUPIVACAINE HYDROCHLORIDE. [Concomitant]
     Active Substance: BUPIVACAINE HYDROCHLORIDE
     Indication: ANAESTHESIA PROCEDURE
     Dosage: 10 MG, DIVIDED DOSE FREQUENCY UNKNOWN
     Route: 051
  2. ORGARAN [Suspect]
     Active Substance: DANAPAROID SODIUM
     Dosage: 1250 UNITS, DAILY DOSE UNKNOWN
     Route: 042
  3. FENTANYL. [Concomitant]
     Active Substance: FENTANYL
     Indication: ANAESTHESIA PROCEDURE
     Dosage: 15 MICROGRAM, DIVIDED DOSE FREQUENCY UNKNOWN
     Route: 065
  4. MORPHINE HYDROCHLORIDE [Concomitant]
     Active Substance: MORPHINE HYDROCHLORIDE
     Indication: ANAESTHESIA PROCEDURE
     Dosage: 150 MICROGRAM, DIVIDED DOSE FREQUENCY UNKNOWN

REACTIONS (1)
  - Maternal exposure during pregnancy [Unknown]
